FAERS Safety Report 6547719-4 (Version None)
Quarter: 2010Q1

REPORT INFORMATION
  Report Type: 
  Country: None (occurrence: None)
  Receive Date: 20100123
  Receipt Date: 20100115
  Transmission Date: 20100710
  Serious: Yes (Other)
  Sender: FDA-Public Use
  Company Number: PT-JNJFOC-20090906087

PATIENT
  Age: 36 Year
  Sex: Male

DRUGS (1)
  1. HALOPERIDOL DECANOATE [Suspect]
     Indication: SCHIZOPHRENIA
     Route: 065

REACTIONS (3)
  - AMNESIA [None]
  - DISTURBANCE IN ATTENTION [None]
  - DYSKINESIA [None]
